FAERS Safety Report 6232354-8 (Version None)
Quarter: 2009Q2

REPORT INFORMATION
  Report Type: 
  Country: None (occurrence: None)
  Receive Date: 20090615
  Receipt Date: 20090615
  Transmission Date: 20091009
  Serious: Yes (Life-Threatening, Hospitalization, Disabling, Other)
  Sender: FDA-Public Use
  Company Number: None

PATIENT
  Sex: Male
  Weight: 95.2554 kg

DRUGS (2)
  1. TICLOPIDINE HCL [Suspect]
     Indication: ANTICOAGULANT THERAPY
     Dosage: DAILY (TWICE)
     Dates: start: 20090420, end: 20090510
  2. TICLOPIDINE HCL [Suspect]
     Indication: CORONARY ARTERIAL STENT INSERTION
     Dosage: DAILY (TWICE)
     Dates: start: 20090420, end: 20090510

REACTIONS (2)
  - BONE MARROW FAILURE [None]
  - PNEUMONITIS [None]
